FAERS Safety Report 15485118 (Version 2)
Quarter: 2018Q4

REPORT INFORMATION
  Report Type: Report from Study
  Country: US (occurrence: US)
  Receive Date: 20181010
  Receipt Date: 20181026
  Transmission Date: 20190205
  Serious: Yes (Hospitalization)
  Sender: FDA-Public Use
  Company Number: US-ACTELION-A-US2018-171275

PATIENT
  Age: 76 Year
  Sex: Female
  Weight: 86.62 kg

DRUGS (25)
  1. ASPIRIN. [Concomitant]
     Active Substance: ASPIRIN
     Dosage: 81 MG, QD
     Route: 048
  2. MULTIVITAMIN [Concomitant]
     Active Substance: VITAMINS
  3. MAGNESIUM [Concomitant]
     Active Substance: MAGNESIUM
  4. ALBUTEROL HFA [Concomitant]
     Active Substance: ALBUTEROL SULFATE
     Dosage: 1 PUGG Q4HRS, PRN
     Dates: start: 20180925
  5. ROPINIROLE. [Concomitant]
     Active Substance: ROPINIROLE
     Dosage: 1MG AT NOON, 1.5 MG QHS
     Route: 048
     Dates: start: 20180404
  6. HALOPERIDOL. [Concomitant]
     Active Substance: HALOPERIDOL
     Dosage: 0.5-1 ML, Q2-4 HRS, PRN
     Route: 048
  7. COENZYME [Concomitant]
     Active Substance: UBIDECARENONE
     Dosage: 30 MG, QD
     Route: 048
  8. LIDOCAINE 5% EXTRA [Concomitant]
     Route: 061
  9. OMEPRAZOLE. [Concomitant]
     Active Substance: OMEPRAZOLE
     Dosage: 40 MG, QD
     Route: 048
     Dates: start: 20180516
  10. SILDENAFIL. [Concomitant]
     Active Substance: SILDENAFIL
     Dosage: 80 MG, TID
     Route: 048
     Dates: start: 20170616
  11. SYNTHROID [Concomitant]
     Active Substance: LEVOTHYROXINE SODIUM
     Dosage: 150 MCG, QAM
     Route: 048
     Dates: start: 20170811
  12. TOVIAZ [Concomitant]
     Active Substance: FESOTERODINE FUMARATE
     Dosage: 8 MG, QD
     Route: 048
  13. MYRBETRIQ [Concomitant]
     Active Substance: MIRABEGRON
     Dosage: 50 MG, QD
     Route: 048
     Dates: start: 20180328
  14. CALCIUM + VITAMIN D [Concomitant]
     Active Substance: CALCIUM\VITAMIN D
     Dosage: UNK, QD
     Route: 048
     Dates: start: 20140101
  15. ONDANSETRON [Concomitant]
     Active Substance: ONDANSETRON
  16. SPIRONOLACTONE. [Concomitant]
     Active Substance: SPIRONOLACTONE
     Dosage: 25 MG, BID
     Route: 048
     Dates: start: 20170518
  17. ZAROXOLYN [Concomitant]
     Active Substance: METOLAZONE
     Dosage: 2.5 MG, 2 TIMES WEEKLY
     Route: 048
     Dates: start: 20170424
  18. UPTRAVI [Suspect]
     Active Substance: SELEXIPAG
     Indication: PULMONARY HYPERTENSION
     Dosage: 1600 MCG, BID
     Route: 048
     Dates: start: 20180116
  19. UPTRAVI [Suspect]
     Active Substance: SELEXIPAG
     Dosage: UNK
     Route: 048
     Dates: start: 20160309
  20. FUROSEMIDE. [Concomitant]
     Active Substance: FUROSEMIDE
     Dosage: 80 MG, BID
     Route: 048
     Dates: start: 20180904
  21. ULTRAM [Concomitant]
     Active Substance: TRAMADOL HYDROCHLORIDE
     Dosage: 50-100MG, Q6HRS, PRN
     Route: 048
     Dates: start: 20180920
  22. POTASSIUM CHLORIDE. [Concomitant]
     Active Substance: POTASSIUM CHLORIDE
     Dosage: 40 MEQ, TID
     Route: 048
     Dates: start: 20180727
  23. METOLAZONE. [Concomitant]
     Active Substance: METOLAZONE
  24. CYSTOSPAZ [Concomitant]
     Active Substance: HYOSCYAMINE
     Dosage: 125 MCG, Q4HRS, PRN
     Route: 002
  25. ZOCOR [Concomitant]
     Active Substance: SIMVASTATIN
     Dosage: 40 MG, QPM
     Route: 048
     Dates: start: 20180404

REACTIONS (45)
  - Chronic kidney disease [Unknown]
  - Oxygen saturation decreased [Unknown]
  - Nasal discomfort [Recovered/Resolved]
  - Viral upper respiratory tract infection [Unknown]
  - Acute kidney injury [Unknown]
  - Dyspnoea [Recovered/Resolved]
  - Hypoxia [Recovered/Resolved]
  - Cardiac failure acute [Unknown]
  - Blood creatinine increased [Unknown]
  - Brain natriuretic peptide abnormal [Unknown]
  - Product dose omission [Unknown]
  - Cough [Recovered/Resolved]
  - Pneumonia [Unknown]
  - Oesophagitis [Unknown]
  - Hiatus hernia [Unknown]
  - Acute respiratory distress syndrome [Unknown]
  - Sinus rhythm [Unknown]
  - Restless legs syndrome [Unknown]
  - Hypotension [Unknown]
  - Blood alkaline phosphatase increased [Unknown]
  - Back pain [Recovering/Resolving]
  - Bilevel positive airway pressure [Unknown]
  - Supraventricular extrasystoles [Unknown]
  - Fall [Unknown]
  - Hyponatraemia [Unknown]
  - Acute respiratory failure [Recovered/Resolved]
  - Vomiting [Recovered/Resolved]
  - Pulmonary oedema [Unknown]
  - Dyspnoea exertional [Unknown]
  - Blood urea abnormal [Unknown]
  - Productive cough [Unknown]
  - Alanine aminotransferase increased [Unknown]
  - Aspartate aminotransferase increased [Unknown]
  - Facial bones fracture [Unknown]
  - Gastrooesophageal reflux disease [Unknown]
  - Nausea [Not Recovered/Not Resolved]
  - Oedema peripheral [Unknown]
  - Gait disturbance [Unknown]
  - White blood cell count increased [Unknown]
  - Gastritis [Unknown]
  - Chronic obstructive pulmonary disease [Unknown]
  - Pulmonary hypertension [Unknown]
  - Pain in extremity [Unknown]
  - Condition aggravated [Unknown]
  - Fatigue [Unknown]

NARRATIVE: CASE EVENT DATE: 20160712
